FAERS Safety Report 9991949 (Version 1)
Quarter: 2014Q1

REPORT INFORMATION
  Report Type: Spontaneous
  Country: US (occurrence: US)
  Receive Date: 20140310
  Receipt Date: 20140310
  Transmission Date: 20141002
  Serious: No
  Sender: FDA-Public Use
  Company Number: US-VIIV HEALTHCARE LIMITED-A1061223A

PATIENT
  Age: 46 Year
  Sex: Male

DRUGS (2)
  1. TIVICAY [Suspect]
     Indication: HIV INFECTION
     Dosage: 50MG PER DAY
     Dates: start: 20140121
  2. EPZICOM [Suspect]
     Indication: HIV INFECTION

REACTIONS (1)
  - Tinnitus [Not Recovered/Not Resolved]
